FAERS Safety Report 12918677 (Version 1)
Quarter: 2016Q4

REPORT INFORMATION
  Report Type: Spontaneous
  Country: US (occurrence: US)
  Receive Date: 20161107
  Receipt Date: 20161107
  Transmission Date: 20170207
  Serious: Yes (Disabling, Other)
  Sender: FDA-Public Use
  Company Number: US-PFIZER INC-3266531

PATIENT
  Age: 70 Year
  Sex: Female
  Weight: 95 kg

DRUGS (2)
  1. METHOTREXATE SODIUM. [Suspect]
     Active Substance: METHOTREXATE SODIUM
     Indication: RHEUMATOID ARTHRITIS
     Dosage: FREQ: 1 WEEK; INTERVAL: 1
     Route: 058
  2. XELJANZ [Suspect]
     Active Substance: TOFACITINIB CITRATE
     Indication: RHEUMATOID ARTHRITIS
     Dosage: 5 MG, FREQ: 2 DAY; INTERVAL: 1
     Dates: start: 20160326

REACTIONS (5)
  - Blindness unilateral [Unknown]
  - Eye swelling [Unknown]
  - Movement disorder [Unknown]
  - Drug ineffective [Unknown]
  - Herpes zoster [Unknown]

NARRATIVE: CASE EVENT DATE: 20160414
